FAERS Safety Report 6667594-7 (Version None)
Quarter: 2010Q2

REPORT INFORMATION
  Report Type: 
  Country: None (occurrence: None)
  Receive Date: 20100405
  Receipt Date: 20100326
  Transmission Date: 20101027
  Serious: Yes (Hospitalization, Other)
  Sender: FDA-Public Use
  Company Number: US-ELI_LILLY_AND_COMPANY-US201003008174

PATIENT
  Age: 88 Year
  Sex: Female

DRUGS (1)
  1. ZYPREXA [Suspect]
     Indication: SEDATION
     Dosage: 5 MG, AS NEEDED
     Dates: start: 20091119, end: 20100101

REACTIONS (8)
  - CONFUSIONAL STATE [None]
  - DEMENTIA [None]
  - MENTAL STATUS CHANGES [None]
  - MOBILITY DECREASED [None]
  - OFF LABEL USE [None]
  - PNEUMONIA [None]
  - PULMONARY EMBOLISM [None]
  - PULMONARY MASS [None]
